FAERS Safety Report 21370144 (Version 1)
Quarter: 2022Q3

REPORT INFORMATION
  Report Type: Report from Study
  Country: US (occurrence: US)
  Receive Date: 20220923
  Receipt Date: 20220923
  Transmission Date: 20221027
  Serious: Yes (Hospitalization)
  Sender: FDA-Public Use
  Company Number: US-IGSA-BIG0020446

PATIENT
  Age: 27 Year
  Sex: Female

DRUGS (1)
  1. GAMUNEX-C [Suspect]
     Active Substance: HUMAN IMMUNOGLOBULIN G
     Indication: Selective IgG subclass deficiency
     Dosage: 40 GRAM, Q.4WK.
     Route: 042
     Dates: start: 20220812

REACTIONS (2)
  - Flushing [Unknown]
  - Chest pain [Unknown]

NARRATIVE: CASE EVENT DATE: 20220914
